FAERS Safety Report 6966006-3 (Version None)
Quarter: 2010Q3

REPORT INFORMATION
  Report Type: 
  Country: None (occurrence: None)
  Receive Date: 20100903
  Receipt Date: 20100826
  Transmission Date: 20110219
  Serious: Yes (Other)
  Sender: FDA-Public Use
  Company Number: AU-AMGEN-QUU421322

PATIENT
  Sex: Female
  Weight: 70.4 kg

DRUGS (14)
  1. ARANESP [Suspect]
     Indication: PRODUCT USED FOR UNKNOWN INDICATION
     Dates: start: 20080201, end: 20100816
  2. AVINZA [Concomitant]
  3. LAMICTAL [Concomitant]
  4. LITHIUM CARBONATE [Concomitant]
  5. NATRILIX - SLOW RELEASE [Concomitant]
  6. NOSPAN [Concomitant]
  7. KARVEA [Concomitant]
  8. ASPIRIN [Concomitant]
  9. TROXSIN [Concomitant]
  10. SOMAC [Concomitant]
  11. VITAMIN D [Concomitant]
  12. VITAMIN B-12 [Concomitant]
  13. PANADOL [Concomitant]
  14. IRON [Concomitant]

REACTIONS (3)
  - ARTHRALGIA [None]
  - BACK PAIN [None]
  - PAIN IN EXTREMITY [None]
